FAERS Safety Report 9629888 (Version 1)
Quarter: 2013Q4

REPORT INFORMATION
  Report Type: Spontaneous
  Country: US (occurrence: US)
  Receive Date: 20131017
  Receipt Date: 20131017
  Transmission Date: 20140711
  Serious: No
  Sender: FDA-Public Use
  Company Number: US-BAYER-2013-125974

PATIENT
  Age: 48 Year
  Sex: Female
  Weight: 79.37 kg

DRUGS (3)
  1. ALEVE CAPLET [Suspect]
     Dosage: 1 DF, PRN
     Dates: start: 201308
  2. IRON [Concomitant]
  3. FISH OIL [Concomitant]

REACTIONS (1)
  - Epistaxis [Recovered/Resolved]
